APPROVED DRUG PRODUCT: TICAGRELOR
Active Ingredient: TICAGRELOR
Strength: 90MG
Dosage Form/Route: TABLET;ORAL
Application: A208599 | Product #001 | TE Code: AB
Applicant: PRINSTON PHARMACEUTICAL INC
Approved: Aug 16, 2024 | RLD: No | RS: No | Type: RX